FAERS Safety Report 12406322 (Version 2)
Quarter: 2016Q2

REPORT INFORMATION
  Report Type: Spontaneous
  Country: US (occurrence: US)
  Receive Date: 20160526
  Receipt Date: 20160615
  Transmission Date: 20160815
  Serious: Yes (Hospitalization)
  Sender: FDA-Public Use
  Company Number: US-LUNDBECK-DKLU2014289

PATIENT
  Age: 8 Month
  Sex: Male

DRUGS (2)
  1. SABRIL [Suspect]
     Active Substance: VIGABATRIN
     Indication: INFANTILE SPASMS
     Route: 065
     Dates: start: 20160325
  2. SABRIL [Suspect]
     Active Substance: VIGABATRIN
     Route: 048
     Dates: start: 201604, end: 201605

REACTIONS (3)
  - Cytomegalovirus infection [Unknown]
  - Infantile spasms [Unknown]
  - Condition aggravated [Unknown]

NARRATIVE: CASE EVENT DATE: 201605
